FAERS Safety Report 4304950-6 (Version None)
Quarter: 2004Q1

REPORT INFORMATION
  Report Type: 
  Country: None (occurrence: None)
  Receive Date: 20040226
  Receipt Date: 20040120
  Transmission Date: 20041129
  Serious: No
  Sender: FDA-Public Use
  Company Number: US-GLAXOSMITHKLINE-A0494268A

PATIENT
  Age: 39 Year
  Sex: Male

DRUGS (6)
  1. WELLBUTRIN [Suspect]
     Indication: DEPRESSION
     Dosage: 150MG PER DAY
     Route: 048
     Dates: start: 20031101, end: 20031201
  2. GABITRIL [Concomitant]
  3. TOPROL-XL [Concomitant]
  4. TRAZODONE HCL [Concomitant]
  5. FIBER [Concomitant]
  6. OXAZEPAM [Concomitant]

REACTIONS (1)
  - DRUG INEFFECTIVE [None]
